FAERS Safety Report 7197599-1 (Version None)
Quarter: 2010Q4

REPORT INFORMATION
  Report Type: 
  Country: None (occurrence: None)
  Receive Date: 20101227
  Receipt Date: 20101206
  Transmission Date: 20110411
  Serious: No
  Sender: FDA-Public Use
  Company Number: US-B.I. PHARMACEUTICALS,INC./RIDGEFIELD-2010-BP-13950BP

PATIENT
  Sex: Male

DRUGS (6)
  1. PRADAXA [Suspect]
     Indication: ATRIAL FIBRILLATION
     Dosage: 300 MG
     Route: 048
     Dates: start: 20101124
  2. LISINOPRIL [Concomitant]
     Indication: HYPERTENSION
     Dosage: 10 MG
     Route: 048
  3. SOTALOL HCL [Concomitant]
     Indication: CARDIAC DISORDER
     Dosage: 160 MG
     Route: 048
     Dates: start: 20090101
  4. GLUCOPHAGE [Concomitant]
     Indication: DIABETES MELLITUS
     Dosage: 800 MG
     Route: 048
  5. LANTUS [Concomitant]
     Indication: DIABETES MELLITUS
     Dosage: 15 U
     Route: 048
     Dates: start: 20090601
  6. COUMADIN [Concomitant]
     Route: 048
     Dates: end: 20101124

REACTIONS (3)
  - CHEST PAIN [None]
  - DYSPEPSIA [None]
  - HAEMATOCHEZIA [None]
